FAERS Safety Report 9258534 (Version 3)
Quarter: 2014Q1

REPORT INFORMATION
  Report Type: Spontaneous
  Country: CA (occurrence: CA)
  Receive Date: 20130426
  Receipt Date: 20140303
  Transmission Date: 20141002
  Serious: Yes (Disabling, Other)
  Sender: FDA-Public Use
  Company Number: CA-009507513-1304CAN014793

PATIENT
  Age: 66 Year
  Sex: Female
  Weight: 55.33 kg

DRUGS (8)
  1. EMEND IV [Suspect]
     Dosage: 150 MG, 1 EVERY 21 DAYS
     Route: 042
  2. CISPLATIN [Concomitant]
     Indication: NON-SMALL CELL LUNG CANCER
     Route: 065
  3. ETOPOSIDE [Concomitant]
     Indication: NON-SMALL CELL LUNG CANCER
     Dosage: UNK
     Route: 065
     Dates: start: 20130415
  4. DEXAMETHASONE [Concomitant]
     Route: 048
  5. GABAPENTIN [Concomitant]
     Route: 048
  6. METOCLOPRAMIDE [Concomitant]
     Route: 065
  7. ONDANSETRON HYDROCHLORIDE [Concomitant]
     Route: 065
  8. RANITIDINE [Concomitant]
     Route: 065

REACTIONS (5)
  - Visual impairment [Unknown]
  - Dyspnoea [Unknown]
  - Chest discomfort [Unknown]
  - Throat irritation [Unknown]
  - Drug hypersensitivity [Unknown]
